FAERS Safety Report 9189151 (Version 2)
Quarter: 2013Q2

REPORT INFORMATION
  Report Type: Spontaneous
  Country: FR (occurrence: MA)
  Receive Date: 20130326
  Receipt Date: 20130425
  Transmission Date: 20140414
  Serious: Yes (Death, Hospitalization)
  Sender: FDA-Public Use
  Company Number: FR-009507513-1303MAR011889

PATIENT
  Age: 60 Year
  Sex: Male

DRUGS (2)
  1. COSOPT [Suspect]
     Indication: VITRECTOMY
     Dosage: TWICE DAILY
     Dates: start: 20130212
  2. MAXIDROL [Concomitant]
     Dosage: UNK
     Dates: start: 20130212

REACTIONS (5)
  - Adverse event [Fatal]
  - Body temperature increased [Unknown]
  - Chills [Unknown]
  - Myalgia [Unknown]
  - Blood glucose abnormal [Unknown]
